FAERS Safety Report 24052441 (Version 1)
Quarter: 2024Q3

REPORT INFORMATION
  Report Type: Spontaneous
  Country: US (occurrence: US)
  Receive Date: 20240704
  Receipt Date: 20240704
  Transmission Date: 20241017
  Serious: No
  Sender: AMGEN
  Company Number: US-AMGEN-USASP2024131475

PATIENT
  Sex: Female

DRUGS (17)
  1. TEPEZZA [Suspect]
     Active Substance: TEPROTUMUMAB-TRBW
     Indication: Endocrine ophthalmopathy
     Dosage: 780 MILLIGRAM, OVER 90 MIN
     Route: 042
     Dates: start: 20240618
  2. TEPEZZA [Suspect]
     Active Substance: TEPROTUMUMAB-TRBW
     Dosage: 780 MILLIGRAM, Q3WK, 2-8 DOSES
     Route: 042
  3. STERILE WATER [Concomitant]
     Active Substance: WATER
  4. SODIUM CHLORIDE [Concomitant]
     Active Substance: SODIUM CHLORIDE
  5. LYUMJEV [Concomitant]
     Active Substance: INSULIN LISPRO-AABC
  6. PREDNISONE [Concomitant]
     Active Substance: PREDNISONE
  7. ATENOLOL [Concomitant]
     Active Substance: ATENOLOL
  8. METHIMAZOLE [Concomitant]
     Active Substance: METHIMAZOLE
  9. ATORVASTATIN CALCIUM [Concomitant]
     Active Substance: ATORVASTATIN CALCIUM
  10. VENLAFAXINE [Concomitant]
     Active Substance: VENLAFAXINE HYDROCHLORIDE
  11. METFORMIN [Concomitant]
     Active Substance: METFORMIN HYDROCHLORIDE
  12. GASTRIC [Concomitant]
  13. GABAPENTIN [Concomitant]
     Active Substance: GABAPENTIN
  14. VITAMINS [Concomitant]
     Active Substance: VITAMINS
  15. IRON [Concomitant]
     Active Substance: IRON
  16. AIRBORNE [Concomitant]
     Active Substance: HERBALS\MINERALS\VITAMINS
  17. MAGNESIUM [Concomitant]
     Active Substance: MAGNESIUM

REACTIONS (1)
  - Diarrhoea [Unknown]
